FAERS Safety Report 20741021 (Version 2)
Quarter: 2022Q2

REPORT INFORMATION
  Report Type: Spontaneous
  Country: BR (occurrence: BR)
  Receive Date: 20220422
  Receipt Date: 20220427
  Transmission Date: 20220721
  Serious: Yes (Other)
  Sender: FDA-Public Use
  Company Number: BR-KOREA IPSEN Pharma-2022-10785

PATIENT
  Age: 40 Year
  Sex: Female
  Weight: 55 kg

DRUGS (11)
  1. DYSPORT [Suspect]
     Active Substance: ABOBOTULINUMTOXINA
     Indication: Skin wrinkling
     Dosage: 122 U (FRONTAL: 10U, GLABELLA: 18U, PERIOCULAR: 10U, NASAL: 4U, MASSETER: 50U, TEMPLE: 30 U)
     Route: 030
     Dates: start: 20211108, end: 20211108
  2. DYSPORT [Suspect]
     Active Substance: ABOBOTULINUMTOXINA
     Indication: Skin wrinkling
  3. DYSPORT [Suspect]
     Active Substance: ABOBOTULINUMTOXINA
     Indication: Skin wrinkling
  4. DYSPORT [Suspect]
     Active Substance: ABOBOTULINUMTOXINA
     Indication: Skin wrinkling
  5. DYSPORT [Suspect]
     Active Substance: ABOBOTULINUMTOXINA
     Indication: Skin wrinkling
  6. DYSPORT [Suspect]
     Active Substance: ABOBOTULINUMTOXINA
     Indication: Skin wrinkling
  7. DYSPORT [Suspect]
     Active Substance: ABOBOTULINUMTOXINA
     Indication: Off label use
  8. HYALURONIC ACID\LIDOCAINE [Suspect]
     Active Substance: HYALURONIC ACID\LIDOCAINE
     Indication: Skin wrinkling
     Dosage: 1 ML (0.5ML IN EACH SIDE)
     Route: 065
     Dates: start: 20211108, end: 20211108
  9. HYALURONIC ACID\LIDOCAINE [Suspect]
     Active Substance: HYALURONIC ACID\LIDOCAINE
     Indication: Skin wrinkling
     Dosage: RIGHT EYEBROW TAIL (0.1ML), RIGHT NASOGENIAN SULCUS (0.1ML) AND IN JAW/JAW ANGLE (0.3ML)
     Route: 065
     Dates: start: 20211108, end: 20211108
  10. HYALURONIC ACID\LIDOCAINE [Suspect]
     Active Substance: HYALURONIC ACID\LIDOCAINE
     Indication: Skin wrinkling
  11. HYALURONIC ACID\LIDOCAINE [Suspect]
     Active Substance: HYALURONIC ACID\LIDOCAINE
     Indication: Skin wrinkling

REACTIONS (5)
  - COVID-19 [Recovered/Resolved]
  - Acute sinusitis [Unknown]
  - Nodule [Not Recovered/Not Resolved]
  - Injection site oedema [Recovering/Resolving]
  - Off label use [Unknown]

NARRATIVE: CASE EVENT DATE: 20210101
